FAERS Safety Report 9294338 (Version 2)
Quarter: 2013Q4

REPORT INFORMATION
  Report Type: Spontaneous
  Country: US (occurrence: None)
  Receive Date: 20121227
  Receipt Date: 20131224
  Transmission Date: 20140711
  Serious: Yes (Other)
  Sender: FDA-Public Use
  Company Number: PHEH2012US018350

PATIENT
  Age: 46 Year
  Sex: Male
  Weight: 131 kg

DRUGS (3)
  1. CLOZARIL [Suspect]
     Indication: SCHIZOPHRENIA
     Route: 048
     Dates: end: 20120621
  2. SEROQUEL (QUETIAPINE FUMARATE) [Concomitant]
  3. TRILEPTAL (OXCARBAZEPINE) [Concomitant]

REACTIONS (2)
  - Neutrophil count decreased [None]
  - White blood cell count decreased [None]
